FAERS Safety Report 20161366 (Version 2)
Quarter: 2021Q4

REPORT INFORMATION
  Report Type: Spontaneous
  Country: CL (occurrence: CL)
  Receive Date: 20211208
  Receipt Date: 20211215
  Transmission Date: 20220303
  Serious: No
  Sender: FDA-Public Use
  Company Number: CL-JNJFOC-20211207116

PATIENT

DRUGS (1)
  1. SIMPONI [Suspect]
     Active Substance: GOLIMUMAB
     Indication: Product used for unknown indication
     Dosage: DOSING STRENGTH: 50.00 MG / 0.50 ML
     Route: 058

REACTIONS (1)
  - Device deployment issue [Unknown]
